FAERS Safety Report 7668350-3 (Version None)
Quarter: 2011Q3

REPORT INFORMATION
  Report Type: 
  Country: None (occurrence: None)
  Receive Date: 20110808
  Receipt Date: 20110727
  Transmission Date: 20111222
  Serious: Yes (Other)
  Sender: FDA-Public Use
  Company Number: FR-PFIZER INC-2011171864

PATIENT
  Age: 59 Year
  Sex: Male

DRUGS (6)
  1. GEMTUZUMAB OZOGAMICIN [Suspect]
     Indication: ACUTE LEUKAEMIA
     Dosage: 12 MG, 1X/DAY
     Route: 042
     Dates: start: 20081117, end: 20081117
  2. CERUBIDINE [Suspect]
     Indication: ACUTE LEUKAEMIA
     Dosage: 70 MG, 1X/DAY
     Route: 042
     Dates: start: 20081114, end: 20081116
  3. CIPROFLOXACIN [Suspect]
  4. CYTARABINE [Suspect]
     Indication: ACUTE MYELOID LEUKAEMIA
     Dosage: 400 MG, 1X/DAY
     Route: 042
     Dates: start: 20081114, end: 20081117
  5. GENTAMICIN [Concomitant]
  6. ROCEPHIN [Concomitant]
     Route: 042

REACTIONS (2)
  - PYREXIA [None]
  - STATUS EPILEPTICUS [None]
